FAERS Safety Report 7577288-1 (Version None)
Quarter: 2011Q2

REPORT INFORMATION
  Report Type: 
  Country: None (occurrence: None)
  Receive Date: 20110628
  Receipt Date: 20110610
  Transmission Date: 20111010
  Serious: Yes (Other)
  Sender: FDA-Public Use
  Company Number: US-BAYER-2011-024593

PATIENT
  Sex: Female
  Weight: 132.88 kg

DRUGS (26)
  1. PROHANCE [Suspect]
     Indication: NUCLEAR MAGNETIC RESONANCE IMAGING
  2. PROHANCE [Suspect]
     Indication: ANGIOGRAM
  3. ARANESP [Concomitant]
  4. CARVEDILOL [Concomitant]
  5. MAGNEVIST [Suspect]
     Indication: ANGIOGRAM
  6. OMNISCAN [Suspect]
     Indication: ANGIOGRAM
  7. MULTIHANCE [Suspect]
     Indication: ANGIOGRAM
  8. PROCRIT [Concomitant]
  9. COUMADIN [Concomitant]
  10. VASOTEC [Concomitant]
  11. ZAROXOLYN [Concomitant]
  12. DILTIAZEM [Concomitant]
  13. OPTIMARK [Suspect]
     Indication: ANGIOGRAM
  14. HYDRALAZINE HCL [Concomitant]
  15. SENSIPAR [Concomitant]
  16. OMNISCAN [Suspect]
     Indication: NUCLEAR MAGNETIC RESONANCE IMAGING
     Dosage: UNK
  17. MAGNEVIST [Suspect]
     Indication: NUCLEAR MAGNETIC RESONANCE IMAGING
     Dosage: UNK
  18. EPOGEN [Concomitant]
  19. RENAGEL [Concomitant]
  20. FUROSEMIDE [Concomitant]
  21. ZOLOFT [Concomitant]
  22. LISINOPRIL [Concomitant]
  23. FERRLECIT [Concomitant]
  24. OPTIMARK [Suspect]
     Indication: NUCLEAR MAGNETIC RESONANCE IMAGING
  25. MULTIHANCE [Suspect]
     Indication: NUCLEAR MAGNETIC RESONANCE IMAGING
  26. ISOSORBIDE MONONITRATE [Concomitant]

REACTIONS (6)
  - PAIN [None]
  - SKIN TIGHTNESS [None]
  - NEPHROGENIC SYSTEMIC FIBROSIS [None]
  - SKIN HYPERPIGMENTATION [None]
  - PAIN IN EXTREMITY [None]
  - SKIN INDURATION [None]
